FAERS Safety Report 8234605-7 (Version None)
Quarter: 2012Q1

REPORT INFORMATION
  Report Type: 
  Country: None (occurrence: None)
  Receive Date: 20120326
  Receipt Date: 20120224
  Transmission Date: 20120608
  Serious: Yes (Death)
  Sender: FDA-Public Use
  Company Number: US-ROCHE-724208

PATIENT
  Sex: Female
  Weight: 51.7 kg

DRUGS (17)
  1. PACLITAXEL [Suspect]
     Indication: NON-SMALL CELL LUNG CANCER
     Route: 042
     Dates: start: 20100402, end: 20100610
  2. AVASTIN [Suspect]
     Dosage: MAINTENANCE THERAPY
     Route: 042
  3. ZOMETA [Concomitant]
  4. COLACE [Concomitant]
  5. PALONOSETRON [Concomitant]
  6. CIPROFLOXACIN [Concomitant]
     Dates: start: 20100322, end: 20100601
  7. AVASTIN [Suspect]
     Indication: NON-SMALL CELL LUNG CANCER
     Dosage: INDUCTION THERAPY COMPLETED
     Route: 042
     Dates: start: 20100402, end: 20100610
  8. CARBOPLATIN [Suspect]
     Indication: NON-SMALL CELL LUNG CANCER
     Dosage: DOSE:6 AUC
     Route: 042
     Dates: start: 20100402, end: 20100610
  9. OMEPRAZOLE [Concomitant]
  10. DEXAMETHASONE [Concomitant]
  11. JANTOVEN [Concomitant]
  12. ASPIRIN [Concomitant]
  13. LORTAB [Concomitant]
  14. BENADRYL [Concomitant]
  15. AMLODIPINE [Concomitant]
  16. RANITIDINE [Concomitant]
  17. COMPAZINE [Concomitant]

REACTIONS (1)
  - CARDIAC ARREST [None]
